FAERS Safety Report 14076359 (Version 3)
Quarter: 2017Q4

REPORT INFORMATION
  Report Type: Spontaneous
  Country: US (occurrence: US)
  Receive Date: 20171011
  Receipt Date: 20171018
  Transmission Date: 20180321
  Serious: No
  Sender: FDA-Public Use
  Company Number: US-BAYER-2017-184617

PATIENT
  Age: 46 Year
  Sex: Female

DRUGS (1)
  1. CLIMARA PRO [Suspect]
     Active Substance: ESTRADIOL\LEVONORGESTREL
     Indication: MENOPAUSAL SYMPTOMS
     Dosage: UNK
     Route: 062
     Dates: start: 20170823

REACTIONS (2)
  - Inappropriate schedule of drug administration [None]
  - Product physical issue [None]

NARRATIVE: CASE EVENT DATE: 20170823
